FAERS Safety Report 9197003 (Version 2)
Quarter: 2013Q2

REPORT INFORMATION
  Report Type: Report from Study
  Country: DE (occurrence: DE)
  Receive Date: 20130328
  Receipt Date: 20130520
  Transmission Date: 20140414
  Serious: Yes (Hospitalization, Other)
  Sender: FDA-Public Use
  Company Number: DE-UCBSA-081348

PATIENT
  Age: 48 Year
  Sex: Male

DRUGS (6)
  1. VIMPAT [Suspect]
     Indication: EPILEPSY
     Dosage: DAILY DOSE: 50 MG
     Dates: start: 20100202, end: 2010
  2. VIMPAT [Suspect]
     Indication: EPILEPSY
     Dosage: DAILY DOSE: 300 MG
     Dates: start: 2010
  3. VIMPAT [Suspect]
     Indication: EPILEPSY
     Dosage: DAILY DOSE: 400 MG
  4. CARBAMAZEPINE [Concomitant]
     Indication: EPILEPSY
     Dosage: DAILY DOSE: 1200 MG
  5. CARBAMAZEPINE [Concomitant]
     Indication: EPILEPSY
     Dosage: DAILY DOSE: 1500 MG
  6. TOPIRAMATE [Concomitant]
     Indication: EPILEPSY
     Dosage: DAILY DOSE: 400 MG
     Dates: end: 2010

REACTIONS (2)
  - Grand mal convulsion [Unknown]
  - Convulsion [Unknown]
